FAERS Safety Report 21921911 (Version 1)
Quarter: 2023Q1

REPORT INFORMATION
  Report Type: Report from Study
  Country: US (occurrence: US)
  Receive Date: 20230127
  Receipt Date: 20230127
  Transmission Date: 20230418
  Serious: Yes (Other)
  Sender: FDA-Public Use
  Company Number: US-BAUSCH-BL-2023-001378

PATIENT
  Age: 81 Year
  Sex: Male
  Weight: 82.946 kg

DRUGS (4)
  1. TARGRETIN [Suspect]
     Active Substance: BEXAROTENE
     Indication: Product used for unknown indication
     Route: 065
     Dates: start: 20220307, end: 202207
  2. TARGRETIN [Suspect]
     Active Substance: BEXAROTENE
     Dosage: MAINTENANCE THERAPY
     Route: 065
     Dates: start: 20221220
  3. HYDROXYZINE [Concomitant]
     Active Substance: HYDROXYZINE HYDROCHLORIDE
     Indication: Product used for unknown indication
     Route: 065
  4. ASPIRIN [Concomitant]
     Active Substance: ASPIRIN
     Indication: Coronary artery disease
     Route: 065

REACTIONS (13)
  - Lymphoproliferative disorder [Unknown]
  - Haematochezia [Unknown]
  - Haematemesis [Unknown]
  - Tuberculosis [Unknown]
  - Dermatitis psoriasiform [Unknown]
  - Anxiety [Unknown]
  - Gingival bleeding [Unknown]
  - Epistaxis [Unknown]
  - Pruritus [Unknown]
  - Oedema peripheral [Recovered/Resolved]
  - Rash [Unknown]
  - Pain [Unknown]
  - Hyperlipidaemia [Unknown]

NARRATIVE: CASE EVENT DATE: 20220321
